FAERS Safety Report 9228475 (Version 2)
Quarter: 2013Q2

REPORT INFORMATION
  Report Type: Spontaneous
  Country: JP (occurrence: JP)
  Receive Date: 20130412
  Receipt Date: 20130502
  Transmission Date: 20140414
  Serious: Yes (Hospitalization)
  Sender: FDA-Public Use
  Company Number: JP-GLAXOSMITHKLINE-B0845482A

PATIENT
  Age: 87 Year
  Sex: Male
  Weight: 56 kg

DRUGS (1)
  1. VALTREX [Suspect]
     Indication: HERPES ZOSTER
     Dosage: 1000MG THREE TIMES PER DAY
     Route: 048
     Dates: start: 20121112, end: 20121113

REACTIONS (2)
  - Altered state of consciousness [Recovered/Resolved]
  - Subdural hygroma [Unknown]
